FAERS Safety Report 21921295 (Version 1)
Quarter: 2023Q1

REPORT INFORMATION
  Report Type: Spontaneous
  Country: DE (occurrence: DE)
  Receive Date: 20230127
  Receipt Date: 20230127
  Transmission Date: 20230418
  Serious: Yes (Other)
  Sender: FDA-Public Use
  Company Number: DE-BAXTER-2023BAX011334

PATIENT
  Age: 30 Year
  Sex: Female

DRUGS (6)
  1. CYCLOPHOSPHAMIDE [Suspect]
     Active Substance: CYCLOPHOSPHAMIDE
     Indication: Breast cancer female
     Dosage: NEOADJUVANT EC CHEMOTHERAPY, 200 MG/M2, WEEKLY (10 CYCLES) IN REDUCED DOSAGE
     Route: 065
     Dates: start: 202112, end: 202204
  2. EPIRUBICIN [Suspect]
     Active Substance: EPIRUBICIN
     Indication: Breast cancer female
     Dosage: NEOADJUVANT EC CHEMOTHERAPY, 30 MG/M2, WEEKLY (10 CYCLES) IN REDUCED DOSAGE
     Route: 065
     Dates: start: 202112, end: 202204
  3. TINZAPARIN [Suspect]
     Active Substance: TINZAPARIN
     Indication: Anticoagulant therapy
     Dosage: BODY-WEIGHT-ADJUSTED LOW-MOLECULAR-WEIGHT HEPARIN
     Route: 065
     Dates: start: 2021
  4. ASPIRIN [Suspect]
     Active Substance: ASPIRIN
     Dosage: 100 MG/DAY
     Route: 065
     Dates: start: 2018
  5. RIVAROXABAN [Suspect]
     Active Substance: RIVAROXABAN
     Indication: Anticoagulant therapy
     Dosage: 15 MG/DAY
     Route: 065
     Dates: start: 2018
  6. METOPROLOL [Suspect]
     Active Substance: METOPROLOL
     Dosage: LOW-DOSE ?-BLOCKER MEDICATION 23.75 MG/DAY
     Route: 065
     Dates: start: 2018

REACTIONS (8)
  - HELLP syndrome [Recovered/Resolved]
  - Thrombocytopenia [Recovered/Resolved]
  - Abdominal pain upper [Recovered/Resolved]
  - Dyspnoea [Recovered/Resolved]
  - Tachycardia [Recovered/Resolved]
  - Hepatic enzyme increased [Recovered/Resolved]
  - Chest pain [Recovered/Resolved]
  - Exposure during pregnancy [Unknown]

NARRATIVE: CASE EVENT DATE: 20210601
